FAERS Safety Report 9271114 (Version 1)
Quarter: 2013Q2

REPORT INFORMATION
  Report Type: Report from Study
  Country: MX (occurrence: MX)
  Receive Date: 20130506
  Receipt Date: 20130506
  Transmission Date: 20140414
  Serious: Yes (Other)
  Sender: FDA-Public Use
  Company Number: PHHY2013MX043016

PATIENT
  Age: 54 Year
  Sex: Male

DRUGS (5)
  1. ACLASTA [Suspect]
     Indication: OSTEOPOROSIS
     Dosage: 5 MG, UNK
     Route: 042
  2. TRILEPTAL [Suspect]
     Dosage: 1 DF DAILY
  3. METHOTREXATE [Concomitant]
     Dosage: 3 DF, DAILY
     Dates: start: 2007
  4. CALCORT [Concomitant]
     Dosage: 1 DF, DAILY
     Dates: start: 1995
  5. ANAPSIQUE [Concomitant]
     Dosage: 1 DF, DAILY

REACTIONS (3)
  - Rheumatoid arthritis [Not Recovered/Not Resolved]
  - Local swelling [Not Recovered/Not Resolved]
  - Local swelling [Not Recovered/Not Resolved]
